FAERS Safety Report 5202521-0 (Version None)
Quarter: 2006Q4

REPORT INFORMATION
  Report Type: 
  Country: None (occurrence: None)
  Receive Date: 20061016
  Receipt Date: 20060823
  Transmission Date: 20070319
  Serious: No
  Sender: FDA-Public Use
  Company Number: 2006SP003104

PATIENT
  Age: 82 Year
  Sex: Female

DRUGS (2)
  1. LUNESTA [Suspect]
     Indication: INSOMNIA
     Dosage: 1 MG;PRN;ORAL
     Route: 048
     Dates: start: 20060801
  2. VITAMINS [Concomitant]

REACTIONS (6)
  - CONTUSION [None]
  - DRUG INEFFECTIVE [None]
  - EXCORIATION [None]
  - FALL [None]
  - MIDDLE INSOMNIA [None]
  - SWELLING [None]
